FAERS Safety Report 5730686-0 (Version None)
Quarter: 2008Q2

REPORT INFORMATION
  Report Type: 
  Country: None (occurrence: None)
  Receive Date: 20080507
  Receipt Date: 20080428
  Transmission Date: 20081010
  Serious: Yes (Other)
  Sender: FDA-Public Use
  Company Number: US-PFIZER INC-2008010912

PATIENT
  Sex: Female

DRUGS (9)
  1. CHANTIX [Suspect]
     Indication: EX-SMOKER
     Route: 048
     Dates: start: 20070801, end: 20080129
  2. GEODON [Suspect]
     Indication: SCHIZOPHRENIA
     Route: 048
  3. ABILIFY [Concomitant]
  4. ZOLOFT [Concomitant]
  5. VIACTIV /USA/ [Concomitant]
  6. DOCUSATE SODIUM [Concomitant]
  7. TOPROL-XL [Concomitant]
  8. LANOXIN [Concomitant]
  9. NASONEX [Concomitant]

REACTIONS (17)
  - ACUTE STRESS DISORDER [None]
  - ASTHENIA [None]
  - ATRIAL FIBRILLATION [None]
  - DISTURBANCE IN ATTENTION [None]
  - EMOTIONAL DISORDER [None]
  - GOITRE [None]
  - HALLUCINATION [None]
  - INFLAMMATION [None]
  - MITRAL VALVE PROLAPSE [None]
  - NASAL POLYPS [None]
  - NICOTINE DEPENDENCE [None]
  - SOCIAL FEAR [None]
  - UTERINE HAEMORRHAGE [None]
  - UTERINE POLYP [None]
  - VISUAL DISTURBANCE [None]
  - WEIGHT DECREASED [None]
  - WEIGHT INCREASED [None]
